FAERS Safety Report 7364513-5 (Version None)
Quarter: 2011Q1

REPORT INFORMATION
  Report Type: 
  Country: None (occurrence: None)
  Receive Date: 20110321
  Receipt Date: 20110311
  Transmission Date: 20110831
  Serious: Yes (Hospitalization)
  Sender: FDA-Public Use
  Company Number: JP-MERCK-1103USA01970

PATIENT
  Age: 59 Year
  Sex: Male

DRUGS (4)
  1. AMARYL [Concomitant]
     Route: 048
  2. NORVASC [Concomitant]
     Route: 048
  3. MAINTATE [Concomitant]
     Route: 048
  4. JANUVIA [Suspect]
     Indication: DIABETES MELLITUS
     Route: 048
     Dates: start: 20100119, end: 20101013

REACTIONS (1)
  - ACUTE MYOCARDIAL INFARCTION [None]
